FAERS Safety Report 21608233 (Version 1)
Quarter: 2022Q4

REPORT INFORMATION
  Report Type: Spontaneous
  Country: CA (occurrence: CA)
  Receive Date: 20221117
  Receipt Date: 20221117
  Transmission Date: 20230112
  Serious: Yes (Death, Hospitalization)
  Sender: FDA-Public Use
  Company Number: None

PATIENT
  Age: 65 Year
  Sex: Male

DRUGS (17)
  1. CARBOPLATIN [Suspect]
     Active Substance: CARBOPLATIN
     Indication: Non-small cell lung cancer metastatic
     Dosage: INJECTION
     Route: 042
  2. PEMETREXED DISODIUM [Suspect]
     Active Substance: PEMETREXED DISODIUM
     Indication: Non-small cell lung cancer metastatic
     Dosage: POWDER FOR SOLUTION, INJECTION SINGLE USE VIAL
     Route: 042
  3. ACETAMINOPHEN [Concomitant]
     Active Substance: ACETAMINOPHEN
  4. DEXAMETHASONE [Concomitant]
     Active Substance: DEXAMETHASONE
     Route: 065
  5. FENTANYL [Concomitant]
     Active Substance: FENTANYL
  6. FOLIC ACID [Concomitant]
     Active Substance: FOLIC ACID
  7. GRANULOCYTE COLONY STIMULATING FACT [Concomitant]
  8. HYDROMORPHONE [Concomitant]
     Active Substance: HYDROMORPHONE
  9. INDOMETHACIN [Concomitant]
     Active Substance: INDOMETHACIN
  10. PEMBROLIZUMAB [Concomitant]
     Active Substance: PEMBROLIZUMAB
  11. LANSOPRAZOLE [Concomitant]
     Active Substance: LANSOPRAZOLE
     Dosage: CAPSULE, DELAYED RELEASE
  12. LORAZEPAM [Concomitant]
     Active Substance: LORAZEPAM
     Route: 065
  13. ONDANSETRON [Concomitant]
     Active Substance: ONDANSETRON
  14. PREGABALIN [Concomitant]
     Active Substance: PREGABALIN
  15. PROCHLORPERAZINE [Concomitant]
     Active Substance: PROCHLORPERAZINE
  16. QUETIAPINE [Concomitant]
     Active Substance: QUETIAPINE
  17. VITAMIN B12 [Concomitant]
     Active Substance: CYANOCOBALAMIN

REACTIONS (7)
  - Anaemia of chronic disease [Fatal]
  - Bone marrow failure [Fatal]
  - Epistaxis [Fatal]
  - General physical health deterioration [Fatal]
  - Haemophagocytic lymphohistiocytosis [Fatal]
  - Infection [Fatal]
  - Pancytopenia [Fatal]
